FAERS Safety Report 6727191-1 (Version None)
Quarter: 2010Q2

REPORT INFORMATION
  Report Type: 
  Country: None (occurrence: None)
  Receive Date: 20100517
  Receipt Date: 20100504
  Transmission Date: 20101027
  Serious: Yes (Other)
  Sender: FDA-Public Use
  Company Number: US-JNJFOC-20100502984

PATIENT
  Sex: Male

DRUGS (3)
  1. CHILDREN'S MOTRIN [Suspect]
     Route: 048
  2. CHILDREN'S MOTRIN [Suspect]
     Indication: DRUG USE FOR UNKNOWN INDICATION
     Route: 048
  3. CHILDRENS TYLENOL PLUS COLD AND COUGH DYE FREE GRAPE [Suspect]
     Indication: DRUG USE FOR UNKNOWN INDICATION

REACTIONS (4)
  - CONVULSION [None]
  - HALLUCINATION [None]
  - HEADACHE [None]
  - PRODUCT QUALITY ISSUE [None]
